FAERS Safety Report 10137221 (Version 1)
Quarter: 2014Q2

REPORT INFORMATION
  Report Type: Spontaneous
  Country: US (occurrence: None)
  Receive Date: 20140428
  Receipt Date: 20140428
  Transmission Date: 20141212
  Serious: Yes (Other)
  Sender: FDA-Public Use
  Company Number: None

PATIENT
  Age: 37 Year
  Sex: Female
  Weight: 70.5 kg

DRUGS (3)
  1. 0.9% SALINE IV FLUSH SYRINGE [Suspect]
     Indication: THERAPEUTIC PROCEDURE
     Route: 042
     Dates: start: 20140423, end: 20140423
  2. COVIDEN SALINE FLUSH [Concomitant]
  3. AZTREONAM [Concomitant]

REACTIONS (4)
  - Dyspnoea [None]
  - Chest discomfort [None]
  - Dizziness [None]
  - Throat irritation [None]
